FAERS Safety Report 4713025-3 (Version None)
Quarter: 2005Q3

REPORT INFORMATION
  Report Type: 
  Country: None (occurrence: None)
  Receive Date: 20050713
  Receipt Date: 20050602
  Transmission Date: 20060218
  Serious: Yes (Hospitalization)
  Sender: FDA-Public Use
  Company Number: US-BRISTOL-MYERS SQUIBB COMPANY-12992285

PATIENT
  Age: 51 Year
  Sex: Female

DRUGS (1)
  1. COUMADIN [Suspect]
     Indication: ATRIAL FIBRILLATION
     Dosage: DOSE INCR. TO 3 MG ALTERN. W/ 2 MG D/T INR DECREASE; DOSE REDUCED 10-JUN-2005 TO 2.5 MG/D POST HOSP.
     Route: 048

REACTIONS (2)
  - INTERNATIONAL NORMALISED RATIO FLUCTUATION [None]
  - INTESTINAL OBSTRUCTION [None]
